FAERS Safety Report 8007509-2 (Version None)
Quarter: 2011Q4

REPORT INFORMATION
  Report Type: 
  Country: None (occurrence: None)
  Receive Date: 20111227
  Receipt Date: 20111216
  Transmission Date: 20120403
  Serious: Yes (Death, Hospitalization)
  Sender: FDA-Public Use
  Company Number: US-EISAI INC-E7272-00104-CLI-US

PATIENT
  Sex: Male

DRUGS (19)
  1. ONTAK [Suspect]
     Route: 041
     Dates: start: 20110329
  2. LORATADINE [Concomitant]
     Indication: PREMEDICATION
     Route: 048
     Dates: start: 20110329
  3. FUROSEMIDE [Concomitant]
     Indication: HYPERTENSION
     Route: 048
     Dates: start: 20090401
  4. FUROSEMIDE [Concomitant]
  5. OSTEO BI-FLEX [Concomitant]
     Indication: OSTEOARTHRITIS
     Route: 048
     Dates: start: 20080101
  6. DOCUSATE SODIUM [Concomitant]
     Indication: CONSTIPATION
     Route: 048
     Dates: start: 20101201
  7. SODIUM CHLORIDE [Concomitant]
     Route: 042
     Dates: start: 20110510, end: 20110701
  8. ACETAMINOPHEN [Concomitant]
     Indication: PREMEDICATION
     Route: 048
     Dates: start: 20110329
  9. COUMADIN [Concomitant]
     Indication: ANTICOAGULANT THERAPY
     Route: 048
     Dates: start: 20090401
  10. DILTIAZEM HCL [Concomitant]
     Indication: ATRIAL FIBRILLATION
  11. METOPROLOL [Concomitant]
     Indication: HYPERTENSION
     Route: 048
     Dates: start: 19960101
  12. MULTI-VITAMINS [Concomitant]
     Indication: VITAMIN SUPPLEMENTATION
     Route: 048
     Dates: start: 20010101
  13. MULTI-VITAMINS [Concomitant]
     Indication: FATIGUE
  14. DILTIAZEM HCL [Concomitant]
     Indication: HYPERTENSION
     Route: 048
     Dates: start: 20090401
  15. CLOBETASOL PROPIONATE [Concomitant]
     Indication: ECZEMA
     Route: 061
     Dates: start: 20090101
  16. CYCLOBENZAPRINE [Concomitant]
     Route: 048
     Dates: start: 20090101, end: 20110621
  17. POTASSIUM [Concomitant]
     Indication: HYPOKALAEMIA
     Route: 048
     Dates: start: 20090401
  18. SODIUM CHLORIDE [Concomitant]
  19. GLYBURIDE [Concomitant]
     Indication: DIABETES MELLITUS
     Route: 048
     Dates: start: 20110428, end: 20110628

REACTIONS (2)
  - CELLULITIS [None]
  - MENTAL STATUS CHANGES [None]
